FAERS Safety Report 15506988 (Version 2)
Quarter: 2019Q3

REPORT INFORMATION
  Report Type: Spontaneous
  Country: US (occurrence: US)
  Receive Date: 20181016
  Receipt Date: 20190828
  Transmission Date: 20191004
  Serious: No
  Sender: FDA-Public Use
  Company Number: US-MYLANLABS-2018M1071976

PATIENT
  Sex: Female
  Weight: 82 kg

DRUGS (1)
  1. CLONIDINE TRANSDERMAL SYSTEM [Suspect]
     Active Substance: CLONIDINE
     Indication: BLOOD PRESSURE MEASUREMENT
     Dosage: UNK
     Route: 062
     Dates: start: 2018

REACTIONS (9)
  - Application site urticaria [Recovering/Resolving]
  - Application site discomfort [Recovering/Resolving]
  - Application site warmth [Recovering/Resolving]
  - Dermatitis contact [Unknown]
  - Incorrect product administration duration [Unknown]
  - Application site burn [Recovering/Resolving]
  - Application site mass [Recovering/Resolving]
  - Weight decreased [Not Recovered/Not Resolved]
  - Application site pruritus [Recovering/Resolving]
